FAERS Safety Report 8470338-X (Version None)
Quarter: 2012Q2

REPORT INFORMATION
  Report Type: 
  Country: None (occurrence: None)
  Receive Date: 20120627
  Receipt Date: 20120622
  Transmission Date: 20120825
  Serious: No
  Sender: FDA-Public Use
  Company Number: US-PFIZER INC-2012152040

PATIENT
  Sex: Male
  Weight: 78.005 kg

DRUGS (5)
  1. SUTENT [Suspect]
     Indication: RENAL CELL CARCINOMA
     Dosage: 50 MG, 1X/DAY
     Dates: start: 20120405
  2. NORVASC [Concomitant]
     Dosage: 10 MG, UNK
  3. CIMETIDINE [Concomitant]
     Indication: ABDOMINAL DISCOMFORT
     Dosage: UNK
  4. SUTENT [Suspect]
     Dosage: 25 MG, UNK
  5. ZOMETA [Concomitant]
     Dosage: UNK

REACTIONS (4)
  - PAIN IN EXTREMITY [None]
  - CHEST PAIN [None]
  - BACK PAIN [None]
  - OEDEMA PERIPHERAL [None]
